FAERS Safety Report 7984822-6 (Version None)
Quarter: 2011Q4

REPORT INFORMATION
  Report Type: 
  Country: None (occurrence: None)
  Receive Date: 20111214
  Receipt Date: 20111205
  Transmission Date: 20120403
  Serious: Yes (Other)
  Sender: FDA-Public Use
  Company Number: CH-GDP-11412563

PATIENT
  Sex: Female
  Weight: 2.5 kg

DRUGS (1)
  1. DIFFERIN [Suspect]
     Dosage: 1 DF QD TRANSPLACENTAL
     Route: 064
     Dates: start: 20100901

REACTIONS (2)
  - MATERNAL DRUGS AFFECTING FOETUS [None]
  - PREMATURE BABY [None]
